FAERS Safety Report 4392838-4 (Version None)
Quarter: 2004Q3

REPORT INFORMATION
  Report Type: 
  Country: None (occurrence: None)
  Receive Date: 20040708
  Receipt Date: 20040316
  Transmission Date: 20050211
  Serious: Yes (Hospitalization, Other)
  Sender: FDA-Public Use
  Company Number: PHBS2004SE03642

PATIENT
  Age: 79 Year
  Sex: Male

DRUGS (6)
  1. LAMISIL [Suspect]
     Indication: NAIL TINEA
     Dosage: 250 MG, QD
     Route: 048
     Dates: start: 20031219, end: 20040115
  2. AERIUS [Concomitant]
     Indication: DERMATITIS CONTACT
     Dosage: 5 MG/DAY
     Route: 048
  3. ELOCON [Concomitant]
     Indication: DERMATITIS CONTACT
     Route: 061
  4. NITROMEX [Concomitant]
     Dosage: 0.25 MG
     Route: 060
  5. TROMBYL [Concomitant]
     Dosage: 75 MG
     Route: 048
  6. FEM-MONO - SLOW RELEASE [Concomitant]
     Dosage: 60 MG
     Route: 048

REACTIONS (24)
  - ALANINE AMINOTRANSFERASE INCREASED [None]
  - ANAEMIA [None]
  - ANOREXIA [None]
  - ANXIETY [None]
  - ASPARTATE AMINOTRANSFERASE INCREASED [None]
  - BLADDER DISORDER [None]
  - BLOOD ALBUMIN DECREASED [None]
  - BLOOD ALKALINE PHOSPHATASE INCREASED [None]
  - BLOOD BILIRUBIN INCREASED [None]
  - CHROMATURIA [None]
  - DIARRHOEA [None]
  - FAECES DISCOLOURED [None]
  - FATIGUE [None]
  - GAMMA-GLUTAMYLTRANSFERASE INCREASED [None]
  - GENERAL PHYSICAL HEALTH DETERIORATION [None]
  - HAEMOGLOBIN DECREASED [None]
  - HEPATIC FAILURE [None]
  - JAUNDICE [None]
  - LIVER FUNCTION TEST ABNORMAL [None]
  - MARKEDLY REDUCED DIETARY INTAKE [None]
  - ORTHOSTATIC HYPOTENSION [None]
  - PRURITUS [None]
  - VITAMIN K [None]
  - WEIGHT DECREASED [None]
